FAERS Safety Report 9366054 (Version 2)
Quarter: 2013Q3

REPORT INFORMATION
  Report Type: Spontaneous
  Country: IT (occurrence: None)
  Receive Date: 20130619
  Receipt Date: 20130725
  Transmission Date: 20140515
  Serious: Yes (Hospitalization)
  Sender: FDA-Public Use
  Company Number: AUR-APL-2013-05027

PATIENT
  Age: 33 Year
  Sex: Male

DRUGS (2)
  1. AMOXICILLIN+CLAVULANIC ACID [Suspect]
     Indication: PNEUMONIA
     Route: 048
     Dates: start: 20130528, end: 20130531
  2. AZITHROMYCIN (AZITHROMYCIN) [Suspect]
     Indication: PNEUMONIA
     Route: 048
     Dates: start: 20130525, end: 20130530

REACTIONS (4)
  - Arthritis [None]
  - Diarrhoea [None]
  - Vomiting [None]
  - Vasculitis necrotising [None]
